APPROVED DRUG PRODUCT: NAPHAZOLINE HYDROCHLORIDE AND PHENIRAMINE MALEATE
Active Ingredient: NAPHAZOLINE HYDROCHLORIDE; PHENIRAMINE MALEATE
Strength: 0.02675%;0.315%
Dosage Form/Route: SOLUTION/DROPS;OPHTHALMIC
Application: A078208 | Product #001
Applicant: ALTAIRE PHARMACEUTICALS INC
Approved: Sep 27, 2010 | RLD: No | RS: No | Type: OTC